FAERS Safety Report 5394820-7 (Version None)
Quarter: 2007Q3

REPORT INFORMATION
  Report Type: 
  Country: None (occurrence: None)
  Receive Date: 20070723
  Receipt Date: 20070708
  Transmission Date: 20080115
  Serious: Yes (Death)
  Sender: FDA-Public Use
  Company Number: JP-GENENTECH-244851

PATIENT
  Age: 55 Year
  Sex: Male

DRUGS (7)
  1. BEVACIZUMAB [Suspect]
     Indication: RECTAL CANCER
     Dosage: 5 MG/KG, Q2W
     Route: 042
     Dates: start: 20070622
  2. OXALIPLATIN [Suspect]
     Indication: RECTAL CANCER
     Dosage: 85 MG/KG, Q2W
     Route: 042
     Dates: start: 20070622
  3. LEVOLEUCOVORIN CALCIUM [Suspect]
     Indication: RECTAL CANCER
     Dosage: 200 MG/M2, Q2W
     Route: 042
     Dates: start: 20070622
  4. FLUOROURACIL [Suspect]
     Indication: RECTAL CANCER
     Dosage: 400 MG/M2, Q2W
     Route: 042
     Dates: start: 20070622
  5. LACTOBACILLUS BIFIDUS [Concomitant]
     Indication: DRUG USE FOR UNKNOWN INDICATION
     Dosage: UNK, UNK
     Dates: start: 20050615
  6. MIYARI BACTERIA [Concomitant]
     Indication: DRUG USE FOR UNKNOWN INDICATION
     Dates: start: 20050615
  7. BERBERINUM [Concomitant]
     Indication: DRUG USE FOR UNKNOWN INDICATION
     Dates: start: 20050615

REACTIONS (21)
  - ARTERIOSCLEROSIS [None]
  - BLOOD CREATININE INCREASED [None]
  - BLOOD PRESSURE DECREASED [None]
  - C-REACTIVE PROTEIN INCREASED [None]
  - CYANOSIS [None]
  - DEPRESSED LEVEL OF CONSCIOUSNESS [None]
  - DRUG INEFFECTIVE [None]
  - EMBOLISM [None]
  - GAIT DISTURBANCE [None]
  - HYDRONEPHROSIS [None]
  - OEDEMA [None]
  - PAIN IN EXTREMITY [None]
  - PALLOR [None]
  - PELVIC PERITONEAL ADHESIONS [None]
  - PLATELET COUNT DECREASED [None]
  - SEPTIC SHOCK [None]
  - SKIN DISCOLOURATION [None]
  - SPLENOMEGALY [None]
  - THROMBOPHLEBITIS [None]
  - VENA CAVA THROMBOSIS [None]
  - WHITE BLOOD CELL COUNT DECREASED [None]
